FAERS Safety Report 4977112-7 (Version None)
Quarter: 2006Q1

REPORT INFORMATION
  Report Type: 
  Country: None (occurrence: None)
  Receive Date: 20060223
  Receipt Date: 20050131
  Transmission Date: 20060701
  Serious: Yes (Death)
  Sender: FDA-Public Use
  Company Number: HQWYE014901FEB05

PATIENT
  Age: 17 Year
  Sex: Male

DRUGS (2)
  1. EFFEXOR [Suspect]
     Indication: DEPRESSION
  2. ZYPREXA [Suspect]
     Indication: DEPRESSION

REACTIONS (2)
  - ANXIETY [None]
  - COMPLETED SUICIDE [None]
